FAERS Safety Report 4618610-5 (Version None)
Quarter: 2005Q1

REPORT INFORMATION
  Report Type: 
  Country: None (occurrence: None)
  Receive Date: 20050324
  Receipt Date: 20050307
  Transmission Date: 20050727
  Serious: Yes (Hospitalization, Other)
  Sender: FDA-Public Use
  Company Number: US_0411108209

PATIENT
  Age: 44 Year
  Sex: Female
  Weight: 130 kg

DRUGS (6)
  1. ZYPREXA [Suspect]
     Indication: BIPOLAR DISORDER
     Dosage: 10 MG/L DAY
     Dates: start: 20000414, end: 20010730
  2. SERZONE [Concomitant]
  3. RISPERDAL [Concomitant]
  4. GEODON [Concomitant]
  5. DEPAKOTE [Concomitant]
  6. HYDROCHLOROTHIAZIDE [Concomitant]

REACTIONS (4)
  - CHOLECYSTECTOMY [None]
  - DIABETES MELLITUS [None]
  - PANCREATITIS [None]
  - WEIGHT INCREASED [None]
